FAERS Safety Report 9473705 (Version 2)
Quarter: 2014Q3

REPORT INFORMATION
  Report Type: Spontaneous
  Country: US (occurrence: US)
  Receive Date: 20130823
  Receipt Date: 20140808
  Transmission Date: 20150326
  Serious: No
  Sender: FDA-Public Use
  Company Number: US-BRISTOL-MYERS SQUIBB COMPANY-16914327

PATIENT
  Age: 56 Year
  Sex: Male
  Weight: 134.69 kg

DRUGS (5)
  1. LOTREL [Concomitant]
     Active Substance: AMLODIPINE BESYLATE\BENAZEPRIL HYDROCHLORIDE
  2. XANAX [Concomitant]
     Active Substance: ALPRAZOLAM
  3. VICODIN [Concomitant]
     Active Substance: ACETAMINOPHEN\HYDROCODONE BITARTRATE
  4. METHADONE [Concomitant]
     Active Substance: METHADONE HYDROCHLORIDE
  5. SPRYCEL [Suspect]
     Active Substance: DASATINIB
     Dosage: TABLET
     Route: 048
     Dates: start: 201204

REACTIONS (2)
  - Somnolence [Unknown]
  - Dysgeusia [Unknown]

NARRATIVE: CASE EVENT DATE: 2012
